FAERS Safety Report 24074256 (Version 1)
Quarter: 2024Q3

REPORT INFORMATION
  Report Type: Spontaneous
  Country: JP (occurrence: JP)
  Receive Date: 20240710
  Receipt Date: 20240710
  Transmission Date: 20241017
  Serious: No
  Sender: PIERRE FABRE MEDICAMENT
  Company Number: JP-maruho-EVC202400036PFM

PATIENT
  Age: 5 Month
  Sex: Female

DRUGS (1)
  1. PROPRANOLOL HYDROCHLORIDE [Suspect]
     Active Substance: PROPRANOLOL HYDROCHLORIDE
     Indication: Hypertrophic cardiomyopathy
     Dosage: INCREASED DOSAGE TO 10 MG/KG/DAY IN 1 YEAR AND THEN DECREASED TO 2 MG/KG/DAY
     Route: 048

REACTIONS (2)
  - Product use in unapproved indication [Unknown]
  - Off label use [Unknown]
